FAERS Safety Report 7269482-4 (Version None)
Quarter: 2011Q1

REPORT INFORMATION
  Report Type: 
  Country: None (occurrence: None)
  Receive Date: 20110202
  Receipt Date: 20101215
  Transmission Date: 20110831
  Serious: Yes (Other)
  Sender: FDA-Public Use
  Company Number: US-BAYER-201014446NA

PATIENT
  Sex: Female
  Weight: 61.224 kg

DRUGS (11)
  1. YASMIN [Suspect]
     Indication: CONTRACEPTION
     Dosage: UNK
     Route: 048
     Dates: start: 20060501, end: 20060601
  2. PROPOXYPHENE NAPSYLATE [Concomitant]
     Dosage: UNK
     Dates: start: 20070401
  3. YAZ [Suspect]
     Indication: CONTRACEPTION
     Dosage: UNK UNK, QD
     Route: 048
     Dates: start: 20061101, end: 20071201
  4. VITAMIN C + E [Concomitant]
     Dosage: UNK
     Dates: start: 20060101
  5. ASPIRIN [Concomitant]
     Indication: HYPERTENSION
     Dosage: UNK
     Dates: start: 20060101
  6. SERTRALINE HYDROCHLORIDE [Concomitant]
     Dosage: 500 MG, UNK
     Dates: start: 20060101
  7. HYDROCODONE BITARTRATE AND ACETAMINOPHEN [Concomitant]
  8. LABETALOL HCL [Concomitant]
     Indication: HYPERTENSION
     Dosage: UNK
     Dates: start: 20060101
  9. LEXAPRO [Concomitant]
     Dosage: UNK
     Dates: start: 20060301
  10. IMITREX [Concomitant]
     Indication: HEADACHE
     Dosage: UNK
     Dates: start: 20060101
  11. CLOMIPHENE CITRATE [Concomitant]
     Dosage: UNK
     Dates: start: 20061001

REACTIONS (4)
  - ABDOMINAL PAIN LOWER [None]
  - CHOLECYSTITIS CHRONIC [None]
  - CHOLELITHIASIS [None]
  - NAUSEA [None]
